FAERS Safety Report 6308051-7 (Version None)
Quarter: 2009Q3

REPORT INFORMATION
  Report Type: 
  Country: None (occurrence: None)
  Receive Date: 20090813
  Receipt Date: 20090807
  Transmission Date: 20100115
  Serious: Yes (Other)
  Sender: FDA-Public Use
  Company Number: B0568693A

PATIENT
  Sex: Female
  Weight: 60 kg

DRUGS (6)
  1. LAPATINIB [Suspect]
     Indication: BREAST CANCER
     Dosage: 1500MG PER DAY
     Route: 048
     Dates: start: 20080407
  2. TRASTUZUMAB [Suspect]
     Indication: BREAST CANCER
     Route: 042
     Dates: start: 20071109, end: 20080125
  3. ASPIRIN [Concomitant]
     Dosage: 100MG PER DAY
     Route: 048
  4. L THYROXIN [Concomitant]
     Indication: THYROID DISORDER
     Dosage: 50MG PER DAY
     Route: 048
  5. RAMIPRIL [Concomitant]
     Dosage: 10MG PER DAY
     Route: 048
     Dates: start: 20060101
  6. TAMOXIFEN CITRATE [Concomitant]
     Indication: HORMONE THERAPY
     Dosage: 20MG PER DAY
     Route: 048
     Dates: start: 20071101

REACTIONS (2)
  - ALANINE AMINOTRANSFERASE INCREASED [None]
  - ASPARTATE AMINOTRANSFERASE INCREASED [None]
